FAERS Safety Report 16168499 (Version 2)
Quarter: 2020Q1

REPORT INFORMATION
  Report Type: Spontaneous
  Country: CA (occurrence: CA)
  Receive Date: 20190408
  Receipt Date: 20200217
  Transmission Date: 20200409
  Serious: Yes (Death)
  Sender: FDA-Public Use
  Company Number: CA-PURDUE PHARMA-CAN-2019-0009877

PATIENT
  Age: 58 Year
  Sex: Male
  Weight: 82 kg

DRUGS (8)
  1. MORPHINE SULFATE. [Suspect]
     Active Substance: MORPHINE SULFATE
     Indication: PRODUCT USED FOR UNKNOWN INDICATION
     Dosage: UNK
     Route: 065
  2. HYDROMORPHONE HYDROCHLORIDE. [Concomitant]
     Active Substance: HYDROMORPHONE HYDROCHLORIDE
  3. ZOPICLONE [Concomitant]
     Active Substance: ZOPICLONE
  4. DIAZEPAM. [Concomitant]
     Active Substance: DIAZEPAM
  5. DIPHENHYDRAMINE. [Concomitant]
     Active Substance: DIPHENHYDRAMINE
  6. OXAZEPAM. [Concomitant]
     Active Substance: OXAZEPAM
  7. QUETIAPINE. [Concomitant]
     Active Substance: QUETIAPINE
  8. RABEPRAZOLE [Concomitant]
     Active Substance: RABEPRAZOLE

REACTIONS (1)
  - Accidental death [Fatal]
